FAERS Safety Report 4669095-4 (Version None)
Quarter: 2005Q2

REPORT INFORMATION
  Report Type: 
  Country: None (occurrence: None)
  Receive Date: 20050519
  Receipt Date: 20050117
  Transmission Date: 20051028
  Serious: Yes (Death, Hospitalization)
  Sender: FDA-Public Use
  Company Number: 2005017121

PATIENT
  Age: 74 Year
  Sex: Male

DRUGS (12)
  1. SOLU-MEDROL [Suspect]
     Indication: ASTHMA
     Dosage: INTRAVENOUS
     Route: 042
  2. METHOTREXATE SODIUM [Concomitant]
  3. LANSOPRAZOLE [Concomitant]
  4. CALCITRIOL [Concomitant]
  5. VALSARTAN [Concomitant]
  6. AMLODIPINE BESYLATE [Concomitant]
  7. REBAMIPIDE [Concomitant]
  8. PREDNISOLONE [Concomitant]
  9. IPRATROPIUM BROMIDE [Concomitant]
  10. FAMOTIDINE [Concomitant]
  11. AMINOPHYLLINE [Concomitant]
  12. FUROSEMIDE [Concomitant]

REACTIONS (2)
  - PLATELET COUNT DECREASED [None]
  - WHITE BLOOD CELL COUNT DECREASED [None]
